FAERS Safety Report 7676751-2 (Version None)
Quarter: 2011Q3

REPORT INFORMATION
  Report Type: 
  Country: None (occurrence: None)
  Receive Date: 20110805
  Receipt Date: 20110721
  Transmission Date: 20111222
  Serious: Yes (Other)
  Sender: FDA-Public Use
  Company Number: 2011MA009268

PATIENT
  Age: 63 Year
  Sex: Female

DRUGS (3)
  1. SIMVASTATIN [Suspect]
  2. DILTIAZEM HCL [Suspect]
     Indication: HYPERTENSION
     Dosage: 90 MG; BID
  3. ENALAPRIL MALEATE [Suspect]
     Indication: HYPERTENSION
     Dosage: 20 MG; BID

REACTIONS (6)
  - BLOOD THYROID STIMULATING HORMONE INCREASED [None]
  - RESPIRATORY DISORDER [None]
  - DRUG INTERACTION [None]
  - MYOPATHY [None]
  - ALANINE AMINOTRANSFERASE INCREASED [None]
  - BLOOD CREATINE PHOSPHOKINASE INCREASED [None]
